FAERS Safety Report 4845650-3 (Version None)
Quarter: 2005Q4

REPORT INFORMATION
  Report Type: 
  Country: None (occurrence: None)
  Receive Date: 20051205
  Receipt Date: 20051130
  Transmission Date: 20060501
  Serious: Yes (Death)
  Sender: FDA-Public Use
  Company Number: US-MERCK-0511USA04626

PATIENT
  Age: 55 Year
  Sex: Male

DRUGS (5)
  1. EMEND [Suspect]
     Indication: POST PROCEDURAL NAUSEA
     Route: 048
  2. EMEND [Suspect]
     Route: 048
  3. ZOFRAN [Concomitant]
     Route: 065
  4. DEXAMETHASONE [Concomitant]
     Route: 065
  5. ANTINEOPLASTIC (UNSPECIFIED) [Concomitant]
     Route: 065

REACTIONS (3)
  - DRUG INEFFECTIVE [None]
  - HICCUPS [None]
  - MALIGNANT MELANOMA [None]
